FAERS Safety Report 7065071-5 (Version None)
Quarter: 2010Q4

REPORT INFORMATION
  Report Type: 
  Country: None (occurrence: None)
  Receive Date: 20101027
  Receipt Date: 20101022
  Transmission Date: 20110411
  Serious: Yes (Hospitalization)
  Sender: FDA-Public Use
  Company Number: PY-B.I. PHARMACEUTICALS,INC./RIDGEFIELD-2010-RA-00377RA

PATIENT
  Age: 83 Year
  Sex: Female

DRUGS (4)
  1. DABIGATRAN ETEXILATE [Suspect]
     Indication: THROMBOSIS PROPHYLAXIS
     Dosage: 75 MG
     Route: 048
  2. CEFALEXINE [Concomitant]
     Indication: POSTOPERATIVE CARE
  3. VOLTAREN [Concomitant]
     Indication: PROCEDURAL PAIN
  4. OMEPRAZOLE [Concomitant]
     Indication: POSTOPERATIVE CARE

REACTIONS (2)
  - HAEMORRHAGE [None]
  - HYPOTENSION [None]
